FAERS Safety Report 4683581-2 (Version None)
Quarter: 2005Q2

REPORT INFORMATION
  Report Type: 
  Country: None (occurrence: None)
  Receive Date: 20050602
  Receipt Date: 20050425
  Transmission Date: 20051028
  Serious: Yes (Hospitalization, Other)
  Sender: FDA-Public Use
  Company Number: USA050496438

PATIENT
  Sex: Female

DRUGS (3)
  1. CYMBALTA [Suspect]
     Dosage: 60 MG DAY
  2. AMITRIPTYLINE HCL [Concomitant]
  3. NARCOTICS ANALGESICS [Concomitant]

REACTIONS (1)
  - IMPAIRED GASTRIC EMPTYING [None]
